FAERS Safety Report 20611783 (Version 1)
Quarter: 2022Q1

REPORT INFORMATION
  Report Type: Spontaneous
  Country: US (occurrence: US)
  Receive Date: 20220318
  Receipt Date: 20220318
  Transmission Date: 20220423
  Serious: Yes (Death)
  Sender: FDA-Public Use
  Company Number: US-ALVOGEN-2022-ALVOGEN-118925

PATIENT
  Age: 44 Year
  Sex: Male

DRUGS (4)
  1. GABAPENTIN [Suspect]
     Active Substance: GABAPENTIN
     Indication: Intentional product misuse
  2. OXYCODONE [Suspect]
     Active Substance: OXYCODONE
     Indication: Intentional product misuse
  3. FENTANYL [Suspect]
     Active Substance: FENTANYL
     Indication: Intentional product misuse
  4. ALPRAZOLAM [Suspect]
     Active Substance: ALPRAZOLAM
     Indication: Intentional product misuse

REACTIONS (1)
  - Intentional product misuse [Fatal]
